FAERS Safety Report 20151329 (Version 2)
Quarter: 2022Q1

REPORT INFORMATION
  Report Type: Spontaneous
  Country: DE (occurrence: DE)
  Receive Date: 20211206
  Receipt Date: 20220118
  Transmission Date: 20220424
  Serious: Yes (Other)
  Sender: FDA-Public Use
  Company Number: DE-002147023-PHHY2019DE156751

PATIENT
  Sex: Female

DRUGS (11)
  1. VALSARTAN [Suspect]
     Active Substance: VALSARTAN
     Indication: Hypertension
     Dosage: 160 MILLIGRAM, QD
     Route: 065
     Dates: start: 20120101, end: 201808
  2. VALSARTAN [Suspect]
     Active Substance: VALSARTAN
     Indication: Cardiac failure
     Dosage: 1 DOSAGE FORM, QD, 0.5 DOSAGE FORM, BID (IN MORNING AND EVENING)
     Route: 065
  3. VALSARTAN [Suspect]
     Active Substance: VALSARTAN
     Dosage: 80 MILLIGRAM, QD
     Route: 065
     Dates: start: 20120217
  4. VALSARTAN [Suspect]
     Active Substance: VALSARTAN
     Dosage: 160 MILLIGRAM, QD
     Route: 065
     Dates: start: 20171129
  5. VALSARTAN [Suspect]
     Active Substance: VALSARTAN
     Indication: Hypertension
     Dosage: 160 MILLIGRAM, QD
     Route: 065
  6. VALSARTAN [Suspect]
     Active Substance: VALSARTAN
     Indication: Cardiac failure
     Dosage: (80)
     Route: 065
  7. VALSARTAN [Suspect]
     Active Substance: VALSARTAN
     Indication: Hypertension
  8. VALSARTAN [Concomitant]
     Active Substance: VALSARTAN
     Indication: Product used for unknown indication
     Dosage: (START DATE: ??-AUG-2018) 160 MILLIGRAM, QD
     Route: 065
     Dates: end: 201904
  9. CANDESARTAN CILEXETIL [Concomitant]
     Active Substance: CANDESARTAN CILEXETIL
     Indication: Product used for unknown indication
     Dosage: (START DATE: ??-MAY-2019)
     Route: 065
  10. SIMVASTATIN [Concomitant]
     Active Substance: SIMVASTATIN
     Indication: Product used for unknown indication
     Dosage: UNK
     Route: 065
     Dates: start: 2006
  11. FALITHROM [Concomitant]
     Active Substance: PHENPROCOUMON
     Indication: Product used for unknown indication
     Dosage: UNK
     Route: 065
     Dates: start: 2006

REACTIONS (36)
  - Acute kidney injury [Unknown]
  - Mental disorder [Unknown]
  - Emotional distress [Unknown]
  - Sleep disorder [Recovering/Resolving]
  - Alopecia [Recovering/Resolving]
  - Arthralgia [Recovering/Resolving]
  - Skin irritation [Recovering/Resolving]
  - Feeling abnormal [Unknown]
  - Gastrointestinal disorder [Recovering/Resolving]
  - Fear of death [Unknown]
  - Motor dysfunction [Unknown]
  - Pain [Unknown]
  - Ligament sprain [Unknown]
  - Coagulopathy [Unknown]
  - Radius fracture [Unknown]
  - Anxiety disorder [Unknown]
  - Coagulation factor deficiency [Unknown]
  - Contusion [Unknown]
  - Complex regional pain syndrome [Unknown]
  - Cardiovascular disorder [Unknown]
  - Fear of disease [Unknown]
  - Vomiting [Unknown]
  - Body temperature increased [Unknown]
  - Muscle strain [Unknown]
  - Viral infection [Unknown]
  - Disturbance in attention [Unknown]
  - Fall [Unknown]
  - Upper respiratory tract infection [Unknown]
  - Head injury [Unknown]
  - Ill-defined disorder [Unknown]
  - Tooth disorder [Unknown]
  - Fatigue [Recovering/Resolving]
  - Nausea [Unknown]
  - Abdominal pain upper [Unknown]
  - Drug hypersensitivity [Unknown]
  - Dizziness [Unknown]

NARRATIVE: CASE EVENT DATE: 20120101
